FAERS Safety Report 23910597 (Version 1)
Quarter: 2024Q2

REPORT INFORMATION
  Report Type: Spontaneous
  Country: US (occurrence: US)
  Receive Date: 20240528
  Receipt Date: 20240528
  Transmission Date: 20240716
  Serious: No
  Sender: FDA-Public Use
  Company Number: US-AVADEL CNS PHARMACEUTICALS, LLC-2024AVA00254

PATIENT
  Age: 20 Year
  Sex: Female

DRUGS (7)
  1. LUMRYZ [Suspect]
     Active Substance: SODIUM OXYBATE
     Indication: Narcolepsy
     Dosage: 6 G
     Dates: start: 202310, end: 20240215
  2. LUMRYZ [Suspect]
     Active Substance: SODIUM OXYBATE
     Indication: Narcolepsy
     Dosage: 7.5 G, ONCE NIGHTLY AT BEDTIME ON AN EMPTY STOMACH
     Dates: start: 20240216, end: 20240321
  3. RITALIN [Concomitant]
     Active Substance: METHYLPHENIDATE HYDROCHLORIDE
     Dosage: UNK, AS NEEDED
  4. BIOTIN [Concomitant]
     Active Substance: BIOTIN
     Dosage: UNK
  5. VITAMIN D2 [Concomitant]
     Active Substance: ERGOCALCIFEROL
     Dosage: UNK
  6. MILI [ETHINYLESTRADIOL;NORGESTIMATE] [Concomitant]
     Dosage: UNK
  7. SUNOSI [Concomitant]
     Active Substance: SOLRIAMFETOL
     Dosage: UNK

REACTIONS (12)
  - Feeling abnormal [Recovered/Resolved]
  - Brain fog [Unknown]
  - Initial insomnia [Recovered/Resolved]
  - Poor quality sleep [Recovered/Resolved]
  - Apathy [Recovered/Resolved]
  - Anger [Recovered/Resolved]
  - Mental fatigue [Recovered/Resolved]
  - Nausea [Recovered/Resolved]
  - Headache [Recovered/Resolved]
  - Depression [Recovered/Resolved]
  - Decreased appetite [Recovered/Resolved]
  - Anxiety [Recovered/Resolved]

NARRATIVE: CASE EVENT DATE: 20240216
